FAERS Safety Report 21349288 (Version 1)
Quarter: 2022Q3

REPORT INFORMATION
  Report Type: Spontaneous
  Country: US (occurrence: US)
  Receive Date: 20220919
  Receipt Date: 20220919
  Transmission Date: 20221026
  Serious: No
  Sender: FDA-Public Use
  Company Number: US-BEH-2022149476

PATIENT
  Sex: Male

DRUGS (1)
  1. HIZENTRA [Suspect]
     Active Substance: HUMAN IMMUNOGLOBULIN G
     Indication: Immunodeficiency common variable
     Dosage: 8 GRAM, QW
     Route: 058
     Dates: start: 20220620

REACTIONS (7)
  - Sinus disorder [Unknown]
  - Hyperaesthesia teeth [Unknown]
  - Oral infection [Unknown]
  - Urine output decreased [Recovered/Resolved]
  - Dysuria [Recovered/Resolved]
  - Fatigue [Unknown]
  - Quality of life decreased [Unknown]
